FAERS Safety Report 14681024 (Version 1)
Quarter: 2018Q1

REPORT INFORMATION
  Report Type: Spontaneous
  Country: US (occurrence: US)
  Receive Date: 20180326
  Receipt Date: 20180326
  Transmission Date: 20180509
  Serious: No
  Sender: FDA-Public Use
  Company Number: US-009507513-1803USA010624

PATIENT
  Sex: Male

DRUGS (10)
  1. ZOLPIDEM TARTRATE. [Concomitant]
     Active Substance: ZOLPIDEM TARTRATE
  2. POTASSIUM (UNSPECIFIED) [Concomitant]
     Active Substance: POTASSIUM
  3. QVAR [Concomitant]
     Active Substance: BECLOMETHASONE DIPROPIONATE
  4. TRIAMTERENE. [Concomitant]
     Active Substance: TRIAMTERENE
  5. INTRON A [Suspect]
     Active Substance: INTERFERON ALFA-2B
     Indication: HEPATIC CANCER
     Dosage: 0.05 ML (18MM UNIT/3ML), 3 TIMES WEEKLY
     Route: 023
     Dates: start: 201802
  6. CODEINE (+) GUAIFENESIN [Concomitant]
     Dosage: 10-100 M
  7. ENTECAVIR. [Concomitant]
     Active Substance: ENTECAVIR
  8. NEXAVAR [Suspect]
     Active Substance: SORAFENIB
  9. LOSARTAN POTASSIUM TABLETS [Concomitant]
     Active Substance: LOSARTAN POTASSIUM
  10. AMLODIPINE BESYLATE. [Concomitant]
     Active Substance: AMLODIPINE BESYLATE

REACTIONS (1)
  - Insomnia [Unknown]

NARRATIVE: CASE EVENT DATE: 2018
